FAERS Safety Report 9644842 (Version 2)
Quarter: 2013Q4

REPORT INFORMATION
  Report Type: Report from Study
  Country: MX (occurrence: MX)
  Receive Date: 20131025
  Receipt Date: 20131025
  Transmission Date: 20140711
  Serious: Yes (Other)
  Sender: FDA-Public Use
  Company Number: PHHY2012MX091739

PATIENT
  Age: 71 Year
  Sex: Female

DRUGS (9)
  1. CO-DIOVAN [Suspect]
     Indication: HYPERTENSION
     Dosage: 1 DF, (320 MG VALS/ 25 MG HYDRO) DAILY
     Route: 048
     Dates: start: 20110907
  2. CO-DIOVAN [Suspect]
     Dosage: 0.5 DF (160 MG VALS/ 12,5 MG HYDRO), DAILY
     Route: 048
  3. CO-DIOVAN [Suspect]
     Dosage: 0.75 DF (160 MG VALS/ 12,5 MG HYDRO), DAILY
     Route: 048
     Dates: start: 201207
  4. CO-DIOVAN [Suspect]
     Dosage: 0.5 DF (320/25 MG), DAILY
     Dates: start: 201301
  5. CO-DIOVAN [Suspect]
     Dosage: 0.5 DF (320/25 MG), BID
     Route: 048
  6. ASPIRINE PROTECT [Concomitant]
     Indication: CARDIAC DISORDER
     Dosage: 1 DF, DAILY
     Dates: start: 201209
  7. METFORMIN [Concomitant]
     Indication: DIABETES MELLITUS
     Dosage: 0.5 DF, UNK
     Dates: start: 201302
  8. LEVOTIROXIN [Concomitant]
     Indication: DIABETES MELLITUS
     Dosage: 1 UKN, DAILY
     Route: 048
  9. INSULIN [Concomitant]
     Indication: DIABETES MELLITUS
     Dosage: 30 U, DAILY

REACTIONS (7)
  - Fall [Not Recovered/Not Resolved]
  - Upper limb fracture [Not Recovered/Not Resolved]
  - Loss of consciousness [Recovered/Resolved]
  - Feeling abnormal [Recovered/Resolved]
  - Sleep disorder [Unknown]
  - Blood pressure decreased [Recovered/Resolved]
  - Wrong technique in drug usage process [Not Recovered/Not Resolved]
